FAERS Safety Report 14773341 (Version 1)
Quarter: 2018Q2

REPORT INFORMATION
  Report Type: Report from Study
  Country: US (occurrence: US)
  Receive Date: 20180418
  Receipt Date: 20180418
  Transmission Date: 20180711
  Serious: Yes (Hospitalization)
  Sender: FDA-Public Use
  Company Number: US-BIOGEN-2018BI00555523

PATIENT
  Sex: Female

DRUGS (1)
  1. TYSABRI [Suspect]
     Active Substance: NATALIZUMAB
     Indication: MULTIPLE SCLEROSIS
     Route: 042
     Dates: start: 20170919

REACTIONS (6)
  - Feeling abnormal [Unknown]
  - Gait disturbance [Unknown]
  - Drug ineffective [Unknown]
  - Injury [Unknown]
  - Fall [Unknown]
  - Mobility decreased [Unknown]
